FAERS Safety Report 6392553-1 (Version None)
Quarter: 2009Q4

REPORT INFORMATION
  Report Type: 
  Country: None (occurrence: None)
  Receive Date: 20091007
  Receipt Date: 20090929
  Transmission Date: 20100525
  Serious: Yes (Other)
  Sender: FDA-Public Use
  Company Number: US-AMGEN-QUU363217

PATIENT
  Sex: Female
  Weight: 133.9 kg

DRUGS (5)
  1. ENBREL [Suspect]
     Indication: DRUG USE FOR UNKNOWN INDICATION
     Route: 058
     Dates: start: 20040830, end: 20090807
  2. BENICAR [Concomitant]
     Dates: start: 20051221
  3. NAPROSYN [Concomitant]
     Dates: start: 20080730
  4. EFFEXOR [Concomitant]
     Dates: start: 20080415, end: 20090807
  5. EFFEXOR [Concomitant]
     Dates: start: 20090801

REACTIONS (2)
  - AMNESIA [None]
  - PSEUDODEMENTIA [None]
